FAERS Safety Report 5249734-X (Version None)
Quarter: 2007Q1

REPORT INFORMATION
  Report Type: 
  Country: None (occurrence: None)
  Receive Date: 20070228
  Receipt Date: 20061016
  Transmission Date: 20070707
  Serious: No
  Sender: FDA-Public Use
  Company Number: US-GLAXOSMITHKLINE-A0622515A

PATIENT
  Sex: Male

DRUGS (3)
  1. IMITREX [Suspect]
     Indication: MIGRAINE
     Route: 058
  2. IMITREX [Suspect]
     Route: 045
  3. IMITREX [Suspect]
     Route: 048

REACTIONS (3)
  - CLUSTER HEADACHE [None]
  - DRUG INEFFECTIVE [None]
  - MIGRAINE [None]
